FAERS Safety Report 7954178 (Version 2)
Quarter: 2013Q2

REPORT INFORMATION
  Report Type: Report from Study
  Country: FR (occurrence: FR)
  Receive Date: 20110520
  Receipt Date: 20130610
  Transmission Date: 20140414
  Serious: Yes (Other)
  Sender: FDA-Public Use
  Company Number: PHHY2011FR40462

PATIENT
  Sex: 0

DRUGS (1)
  1. STI571 [Suspect]
     Indication: CHRONIC MYELOID LEUKAEMIA

REACTIONS (3)
  - Fall [Unknown]
  - Clavicle fracture [Unknown]
  - Fractured coccyx [Unknown]
